FAERS Safety Report 8816847 (Version 1)
Quarter: 2012Q4

REPORT INFORMATION
  Report Type: Spontaneous
  Country: US (occurrence: None)
  Receive Date: 20121002
  Receipt Date: 20121002
  Transmission Date: 20130627
  Serious: No
  Sender: FDA-Public Use
  Company Number: None

PATIENT
  Age: 48 Year
  Sex: Male
  Weight: 102.06 kg

DRUGS (1)
  1. DEXTROAMPHETAMINE [Suspect]

REACTIONS (6)
  - Lethargy [None]
  - Increased appetite [None]
  - Libido decreased [None]
  - Depressive symptom [None]
  - Product quality issue [None]
  - Product substitution issue [None]
